FAERS Safety Report 7627635-7 (Version None)
Quarter: 2011Q3

REPORT INFORMATION
  Report Type: 
  Country: None (occurrence: None)
  Receive Date: 20110721
  Receipt Date: 20110715
  Transmission Date: 20111222
  Serious: Yes (Hospitalization)
  Sender: FDA-Public Use
  Company Number: US-PFIZER INC-2010132075

PATIENT
  Sex: Female
  Weight: 132.3 kg

DRUGS (3)
  1. VITAMIN D [Concomitant]
     Dosage: 50.000 UNITS PER WEEK
     Dates: start: 20050502
  2. SOMATROPIN RDNA [Suspect]
     Indication: HYPOPITUITARISM
     Dosage: 0.3 MG, 1X/DAY
     Dates: start: 20080303
  3. METFORMIN HYDROCHLORIDE [Concomitant]
     Dosage: UNK MG, 1X/DAY
     Dates: start: 20070701

REACTIONS (2)
  - SPINAL COLUMN STENOSIS [None]
  - NERVE DEGENERATION [None]
